FAERS Safety Report 7933044-3 (Version None)
Quarter: 2011Q4

REPORT INFORMATION
  Report Type: 
  Country: None (occurrence: None)
  Receive Date: 20111122
  Receipt Date: 20111109
  Transmission Date: 20120403
  Serious: Yes (Death, Hospitalization, Other)
  Sender: FDA-Public Use
  Company Number: US-ELI_LILLY_AND_COMPANY-US201109006053

PATIENT
  Sex: Female
  Weight: 47.2 kg

DRUGS (35)
  1. PREDNISONE TAB [Concomitant]
     Indication: RHEUMATOID ARTHRITIS
     Dosage: 5 MG, QD
     Route: 048
  2. XANAX [Concomitant]
     Dosage: 0.37 MG, QD
     Route: 048
  3. MAGNESIUM OXIDE [Concomitant]
     Dosage: 200 MG, QD
  4. FEOSOL [Concomitant]
     Dosage: 325 MG, TID
  5. SYNTHROID [Concomitant]
     Indication: HYPOTHYROIDISM
     Dosage: 88 UG, QD
     Route: 048
  6. POTASSIUM CHLORIDE [Concomitant]
     Dosage: 10 MEQ, QD
  7. COLACE [Concomitant]
     Dosage: 100 MG, BID
  8. ICAPS PLUS [Concomitant]
     Dosage: UNK, QD
  9. MUPIROCIN [Concomitant]
     Dosage: UNK, TID
     Route: 061
  10. PREDNISONE TAB [Concomitant]
     Dosage: 2.5 MG, QOD
     Route: 048
  11. METHOTREXATE [Concomitant]
     Indication: RHEUMATOID ARTHRITIS
     Dosage: 20 MG, WEEKLY (1/W)
     Route: 058
  12. SYNTHROID [Concomitant]
     Dosage: 125 UG, QD
     Route: 048
  13. CENTRUM [Concomitant]
     Indication: SPINAL COMPRESSION FRACTURE
     Dosage: UNK, QD
     Route: 048
  14. FLEXERIL [Concomitant]
     Indication: MUSCLE SPASMS
     Dosage: 10 MG, EACH EVENING
  15. DICLOFENAC SODIUM [Concomitant]
     Dosage: 2 G, PRN
     Route: 061
  16. DIGOXIN [Concomitant]
     Dosage: 125 UG, QD
  17. METHOTREXATE SODIUM [Concomitant]
     Dosage: 15 MG, WEEKLY (1/W)
  18. METHOTREXATE [Concomitant]
     Dosage: 15 MG, WEEKLY (1/W)
     Route: 058
  19. PLAQUENIL [Concomitant]
     Indication: RHEUMATOID ARTHRITIS
     Dosage: 200 MG, BID
     Route: 048
  20. CALCIUM W/VITAMIN D NOS [Concomitant]
     Indication: OSTEOPOROSIS
     Dosage: 600 MG, BID
     Route: 048
     Dates: end: 20110101
  21. DUONEB [Concomitant]
     Dosage: 3 ML, PRN
  22. OXYGEN [Concomitant]
     Dosage: 2 L, PRN
  23. FORTEO [Suspect]
     Indication: OSTEOPOROSIS
     Dosage: 20 UG, QD
     Route: 058
     Dates: start: 20110112
  24. PREDNISONE TAB [Concomitant]
     Dosage: 2.5 MG, QD
     Route: 048
  25. PLAQUENIL [Concomitant]
     Dosage: 200 MG, QD
     Route: 048
  26. PAMELOR [Concomitant]
     Dosage: 10 MG, PRN
     Route: 048
  27. DURAGESIC-100 [Concomitant]
     Indication: SPINAL COMPRESSION FRACTURE
     Dosage: 50 UG, EVERY HOUR
     Route: 061
  28. LASIX [Concomitant]
     Dosage: 20 MG, QD
  29. ERGOCALCIFEROL [Concomitant]
     Indication: OSTEOPOROSIS
     Dosage: 50000 IU, WEEKLY (1/W)
     Route: 048
  30. LORTAB [Concomitant]
     Indication: SPINAL COMPRESSION FRACTURE
     Dosage: 500 MG, PRN
     Route: 048
  31. LIPITOR [Concomitant]
     Dosage: 20 MG, EACH EVENING
  32. LEXAPRO [Concomitant]
     Dosage: 10 MG, QD
  33. PLAVIX [Concomitant]
     Dosage: 75 MG, QD
  34. FOLIC ACID [Concomitant]
     Indication: RHEUMATOID ARTHRITIS
     Dosage: 1 MG, QD
     Route: 048
  35. RANITIDINE [Concomitant]
     Dosage: 300 MG, EACH EVENING

REACTIONS (11)
  - DECREASED APPETITE [None]
  - BRONCHITIS [None]
  - PNEUMONIA [None]
  - INTESTINAL OBSTRUCTION [None]
  - FATIGUE [None]
  - DRY MOUTH [None]
  - GALLBLADDER OPERATION [None]
  - CONSTIPATION [None]
  - WEIGHT DECREASED [None]
  - DEATH [None]
  - MALAISE [None]
